FAERS Safety Report 4899145-1 (Version None)
Quarter: 2006Q1

REPORT INFORMATION
  Report Type: 
  Country: None (occurrence: None)
  Receive Date: 20060202
  Receipt Date: 20051118
  Transmission Date: 20060701
  Serious: Yes (Death)
  Sender: FDA-Public Use
  Company Number: DE-SANOFI-SYNTHELABO-F01200502485

PATIENT
  Sex: Female

DRUGS (2)
  1. ELOXATIN [Suspect]
     Indication: METASTATIC NEOPLASM
     Route: 041
     Dates: start: 20051005, end: 20051005
  2. CAPECITABIN [Suspect]
     Indication: METASTATIC NEOPLASM
     Dosage: 1000 MG/M2
     Route: 048
     Dates: start: 20050914, end: 20051005

REACTIONS (11)
  - ASTHENIA [None]
  - BLOOD PRESSURE DECREASED [None]
  - DEHYDRATION [None]
  - DIARRHOEA [None]
  - DISEASE PROGRESSION [None]
  - HEPATIC FAILURE [None]
  - JAUNDICE [None]
  - MALIGNANT NEOPLASM PROGRESSION [None]
  - METASTASES TO LIVER [None]
  - PNEUMONIA [None]
  - VOMITING [None]
